FAERS Safety Report 9664882 (Version 1)
Quarter: 2013Q4

REPORT INFORMATION
  Report Type: Spontaneous
  Country: PL (occurrence: PL)
  Receive Date: 20131101
  Receipt Date: 20131101
  Transmission Date: 20140711
  Serious: Yes (Life-Threatening)
  Sender: FDA-Public Use
  Company Number: PL-WATSON-2013-20027

PATIENT
  Age: 58 Year
  Sex: Female

DRUGS (1)
  1. CARBOPLATIN ACTAVIS [Suspect]
     Indication: OVARIAN CANCER
     Dosage: 5 ML, DAILY; DOSAGE TEXT: 50MG/5ML
     Route: 041
     Dates: start: 20130905, end: 20130905

REACTIONS (8)
  - Anxiety [Recovering/Resolving]
  - Blood pressure decreased [Recovering/Resolving]
  - Tachycardia [Recovering/Resolving]
  - Hypotonia [Recovering/Resolving]
  - Chest pain [Recovering/Resolving]
  - Dyspnoea [Recovering/Resolving]
  - Pallor [Recovering/Resolving]
  - Diarrhoea [Recovering/Resolving]
